FAERS Safety Report 7326790-6 (Version None)
Quarter: 2011Q1

REPORT INFORMATION
  Report Type: 
  Country: None (occurrence: None)
  Receive Date: 20110223
  Receipt Date: 20110210
  Transmission Date: 20110831
  Serious: Yes (Death)
  Sender: FDA-Public Use
  Company Number: CRC-11-033

PATIENT
  Age: 46 Year
  Sex: Female

DRUGS (2)
  1. SYNALGOS@-DC(DIHYDROCODEINE, ASPIRIN, CAFFEINE) CAPS. [Suspect]
  2. LORCET-HD [Suspect]

REACTIONS (1)
  - DEATH [None]
